FAERS Safety Report 5495701-0 (Version None)
Quarter: 2007Q4

REPORT INFORMATION
  Report Type: 
  Country: None (occurrence: None)
  Receive Date: 20071025
  Receipt Date: 20071022
  Transmission Date: 20080405
  Serious: Yes (Hospitalization)
  Sender: FDA-Public Use
  Company Number: JP-BAYER-200710764BYL

PATIENT
  Age: 82 Year
  Sex: Female

DRUGS (7)
  1. AVELOX [Suspect]
     Indication: DERMATITIS INFECTED
     Dosage: TOTAL DAILY DOSE: 400 MG  UNIT DOSE: 400 MG
     Route: 048
     Dates: start: 20070926, end: 20070929
  2. DOXAZOSIN MESYLATE [Concomitant]
     Route: 048
  3. ASPIRIN [Concomitant]
     Route: 048
  4. SENNOSIDE [Concomitant]
     Route: 048
  5. NORVASC [Concomitant]
     Route: 048
  6. NITRODERM [Concomitant]
     Route: 062
  7. OMEPRAZOLE [Concomitant]
     Route: 048

REACTIONS (2)
  - PETECHIAE [None]
  - RASH [None]
